FAERS Safety Report 7343176-9 (Version None)
Quarter: 2011Q1

REPORT INFORMATION
  Report Type: 
  Country: None (occurrence: None)
  Receive Date: 20110310
  Receipt Date: 20110301
  Transmission Date: 20110831
  Serious: Yes (Other)
  Sender: FDA-Public Use
  Company Number: PHHY2011US17606

PATIENT
  Sex: Female

DRUGS (4)
  1. BACLOFEN [Concomitant]
     Indication: MUSCLE SPASMS
  2. GILENYA [Suspect]
     Dosage: 0.5 MG, QOD
     Route: 048
     Dates: start: 20110228
  3. MECLIZINE [Concomitant]
     Indication: DIZZINESS
  4. GILENYA [Suspect]
     Indication: MULTIPLE SCLEROSIS
     Dosage: 0.5 MG, QD
     Route: 048
     Dates: start: 20110117, end: 20110215

REACTIONS (5)
  - HYPERTENSION [None]
  - PALPITATIONS [None]
  - DYSPNOEA [None]
  - CHEST DISCOMFORT [None]
  - DRUG DOSE OMISSION [None]
